FAERS Safety Report 6739872-4 (Version None)
Quarter: 2010Q2

REPORT INFORMATION
  Report Type: 
  Country: None (occurrence: None)
  Receive Date: 20100525
  Receipt Date: 20100520
  Transmission Date: 20101027
  Serious: Yes (Other)
  Sender: FDA-Public Use
  Company Number: AU-BRISTOL-MYERS SQUIBB COMPANY-15115082

PATIENT
  Sex: Male

DRUGS (1)
  1. AVAPRO-HCT TABS 300 MG/12.5 MG [Suspect]

REACTIONS (1)
  - MACULAR DEGENERATION [None]
